FAERS Safety Report 8214781-2 (Version None)
Quarter: 2012Q1

REPORT INFORMATION
  Report Type: 
  Country: None (occurrence: None)
  Receive Date: 20120316
  Receipt Date: 20120306
  Transmission Date: 20120608
  Serious: Yes (Other)
  Sender: FDA-Public Use
  Company Number: US-BRISTOL-MYERS SQUIBB COMPANY-16440315

PATIENT
  Age: 65 Year
  Sex: Female
  Weight: 86 kg

DRUGS (4)
  1. SYNTHROID [Concomitant]
     Dosage: DURATION: FOR 35 YEARS
  2. GLUCOPHAGE [Suspect]
     Dosage: 10YRS
  3. ZETIA [Concomitant]
  4. ACCUPRIL [Concomitant]

REACTIONS (6)
  - TREMOR [None]
  - INTRACRANIAL ANEURYSM [None]
  - BLOOD GLUCOSE ABNORMAL [None]
  - URTICARIA [None]
  - VITAMIN B12 DEFICIENCY [None]
  - FATIGUE [None]
